FAERS Safety Report 11277531 (Version 1)
Quarter: 2015Q3

REPORT INFORMATION
  Report Type: Spontaneous
  Country: US (occurrence: US)
  Receive Date: 20150716
  Receipt Date: 20150716
  Transmission Date: 20151125
  Serious: Yes (Congenital Anomaly)
  Sender: FDA-Public Use
  Company Number: US-ABBVIE-15P-163-1425800-00

PATIENT

DRUGS (1)
  1. DEPAKOTE [Suspect]
     Active Substance: DIVALPROEX SODIUM
     Indication: MATERNAL EXPOSURE TIMING UNSPECIFIED
     Route: 064

REACTIONS (25)
  - Patent ductus arteriosus [Unknown]
  - Language disorder [Unknown]
  - Communication disorder [Unknown]
  - Fine motor skill dysfunction [Unknown]
  - Cleft lip [Unknown]
  - Abnormal behaviour [Unknown]
  - Economic problem [Unknown]
  - Cleft palate [Unknown]
  - Low set ears [Unknown]
  - Syndactyly [Unknown]
  - Foetal exposure during pregnancy [Unknown]
  - Emotional distress [Unknown]
  - Cognitive disorder [Unknown]
  - Tricuspid valve incompetence [Unknown]
  - Atrial septal defect [Unknown]
  - Foetal anticonvulsant syndrome [Unknown]
  - Dysmorphism [Unknown]
  - Mental impairment [Unknown]
  - Gross motor delay [Unknown]
  - Educational problem [Unknown]
  - Congenital nose malformation [Unknown]
  - Skull malformation [Unknown]
  - Pain [Unknown]
  - Anhedonia [Unknown]
  - Cardiac murmur [Unknown]
